FAERS Safety Report 25606738 (Version 1)
Quarter: 2025Q3

REPORT INFORMATION
  Report Type: Spontaneous
  Country: US (occurrence: US)
  Receive Date: 20250725
  Receipt Date: 20250725
  Transmission Date: 20251020
  Serious: Yes (Death, Life-Threatening, Other)
  Sender: AMGEN
  Company Number: US-AMGEN-USASP2025142391

PATIENT
  Age: 38 Year
  Sex: Female

DRUGS (5)
  1. RITUXIMAB [Suspect]
     Active Substance: RITUXIMAB
     Indication: Antiphospholipid syndrome
     Route: 065
  2. RITUXIMAB [Suspect]
     Active Substance: RITUXIMAB
     Indication: Systemic lupus erythematosus
  3. MYCOPHENOLIC ACID [Concomitant]
     Active Substance: MYCOPHENOLIC ACID
     Indication: Systemic lupus erythematosus
  4. HYDROXYCHLOROQUINE [Concomitant]
     Active Substance: HYDROXYCHLOROQUINE
     Indication: Systemic lupus erythematosus
  5. WARFARIN [Concomitant]
     Active Substance: WARFARIN
     Indication: Systemic lupus erythematosus

REACTIONS (11)
  - Arrhythmia [Fatal]
  - Pancytopenia [Unknown]
  - Acute respiratory distress syndrome [Unknown]
  - Shock [Unknown]
  - Pulmonary alveolar haemorrhage [Unknown]
  - Ischaemic stroke [Unknown]
  - Acute kidney injury [Unknown]
  - Hyperkalaemia [Unknown]
  - Adenovirus infection [Unknown]
  - Hypertransaminasaemia [Unknown]
  - Off label use [Unknown]
